FAERS Safety Report 4693940-X (Version None)
Quarter: 2005Q2

REPORT INFORMATION
  Report Type: 
  Country: None (occurrence: None)
  Receive Date: 20050617
  Receipt Date: 20041216
  Transmission Date: 20051028
  Serious: Yes (Hospitalization, Other)
  Sender: FDA-Public Use
  Company Number: US-MERCK-0412USA02009

PATIENT
  Age: 57 Year
  Sex: Female
  Weight: 109 kg

DRUGS (17)
  1. VIOXX [Suspect]
     Route: 048
     Dates: start: 20031023
  2. COREG [Concomitant]
     Route: 065
  3. IMDUR [Concomitant]
     Route: 048
     Dates: end: 20031125
  4. LASIX [Concomitant]
     Route: 065
  5. LEVOXAN [Concomitant]
     Indication: HYPOTHYROIDISM
     Route: 065
  6. PRILOSEC [Concomitant]
     Indication: GASTROOESOPHAGEAL REFLUX DISEASE
     Route: 065
  7. PROZAC [Concomitant]
     Indication: DEPRESSION
     Route: 065
  8. SPIRONOLACTONE [Concomitant]
     Route: 065
  9. ZESTRIL [Concomitant]
     Route: 065
  10. ZETIA [Concomitant]
     Route: 065
  11. ZOCOR [Concomitant]
     Indication: BLOOD CHOLESTEROL INCREASED
     Route: 065
  12. PERCOCET [Concomitant]
     Route: 065
  13. ASPIRIN [Concomitant]
     Route: 065
  14. ISOSORBIDE [Concomitant]
     Route: 065
  15. EVISTA [Concomitant]
     Route: 065
  16. LEVOXYL [Concomitant]
     Route: 065
  17. VITAMINS (UNSPECIFIED) [Concomitant]
     Route: 065

REACTIONS (36)
  - ALANINE AMINOTRANSFERASE INCREASED [None]
  - ASTHENIA [None]
  - BASOPHIL COUNT INCREASED [None]
  - BLOOD CREATININE INCREASED [None]
  - BLOOD GLUCOSE INCREASED [None]
  - BLOOD PRESSURE SYSTOLIC INCREASED [None]
  - BLOOD UREA INCREASED [None]
  - BRADYCARDIA [None]
  - CARPAL TUNNEL SYNDROME [None]
  - CHEST DISCOMFORT [None]
  - CHEST PAIN [None]
  - CHEST WALL PAIN [None]
  - CORONARY ARTERY DISEASE [None]
  - DEHYDRATION [None]
  - DIARRHOEA [None]
  - DIPLOPIA [None]
  - DIZZINESS [None]
  - EJECTION FRACTION DECREASED [None]
  - EOSINOPHIL COUNT INCREASED [None]
  - FEELING ABNORMAL [None]
  - HEADACHE [None]
  - HYPOTENSION [None]
  - LYMPHOCYTE COUNT INCREASED [None]
  - MONOCYTE COUNT INCREASED [None]
  - MYOCARDIAL INFARCTION [None]
  - PAIN IN EXTREMITY [None]
  - RED CELL DISTRIBUTION WIDTH INCREASED [None]
  - RESPIRATORY RATE INCREASED [None]
  - SINUS BRADYCARDIA [None]
  - SYNCOPE [None]
  - TRANSIENT ISCHAEMIC ATTACK [None]
  - VENTRICULAR DYSFUNCTION [None]
  - VENTRICULAR HYPERTROPHY [None]
  - VENTRICULAR HYPOKINESIA [None]
  - VESTIBULAR DISORDER [None]
  - VISION BLURRED [None]
